FAERS Safety Report 21180401 (Version 2)
Quarter: 2022Q3

REPORT INFORMATION
  Report Type: Spontaneous
  Country: JP (occurrence: JP)
  Receive Date: 20220806
  Receipt Date: 20220919
  Transmission Date: 20221027
  Serious: Yes (Hospitalization)
  Sender: FDA-Public Use
  Company Number: JP-BAYER-2022A107794

PATIENT
  Age: 85 Year
  Sex: Female
  Weight: 51 kg

DRUGS (9)
  1. XARELTO [Suspect]
     Active Substance: RIVAROXABAN
     Indication: Atrial fibrillation
     Dosage: 1 DF, QD
     Route: 048
     Dates: start: 202104, end: 202202
  2. XARELTO [Suspect]
     Active Substance: RIVAROXABAN
     Indication: Atrial fibrillation
     Dosage: 1 DF, QD
     Route: 048
     Dates: start: 202202, end: 202202
  3. METHOTREXATE [Concomitant]
     Active Substance: METHOTREXATE
  4. CELECOXIB [Concomitant]
     Active Substance: CELECOXIB
  5. LOXOPROFEN SODIUM [Concomitant]
     Active Substance: LOXOPROFEN SODIUM
  6. CHLORPHENESIN CARBAMATE [Concomitant]
     Active Substance: CHLORPHENESIN CARBAMATE
  7. FOLIC ACID [Concomitant]
     Active Substance: FOLIC ACID
  8. ZOLPIDEM [Concomitant]
     Active Substance: ZOLPIDEM TARTRATE
  9. POLAPREZINC [Concomitant]
     Active Substance: POLAPREZINC

REACTIONS (5)
  - Ureterolithiasis [Unknown]
  - Haematuria [Recovered/Resolved]
  - Haematuria [Recovered/Resolved]
  - Back pain [Unknown]
  - Therapy cessation [Unknown]

NARRATIVE: CASE EVENT DATE: 20220101
